FAERS Safety Report 5423519-3 (Version None)
Quarter: 2007Q3

REPORT INFORMATION
  Report Type: 
  Country: None (occurrence: None)
  Receive Date: 20070823
  Receipt Date: 20070813
  Transmission Date: 20080115
  Serious: Yes (Hospitalization)
  Sender: FDA-Public Use
  Company Number: US-AMGEN-US237547

PATIENT
  Age: 44 Year
  Sex: Male
  Weight: 85.8 kg

DRUGS (10)
  1. PALIFERMIN [Suspect]
     Indication: HIV INFECTION
     Route: 042
     Dates: start: 20070212, end: 20070214
  2. RITALIN [Concomitant]
     Route: 065
  3. PROPECIA [Concomitant]
     Route: 065
  4. MINOCIN [Concomitant]
     Route: 065
  5. TEMAZEPAM [Concomitant]
     Route: 065
  6. LORAZEPAM [Concomitant]
     Route: 065
  7. RITONAVIR [Concomitant]
     Route: 065
  8. TRUVADA [Concomitant]
     Route: 065
  9. TRIZIVIR [Concomitant]
     Route: 065
  10. PREZISTA [Concomitant]
     Route: 065

REACTIONS (1)
  - BASAL CELL CARCINOMA [None]
